FAERS Safety Report 9319771 (Version 1)
Quarter: 2013Q2

REPORT INFORMATION
  Report Type: Spontaneous
  Country: FR (occurrence: FR)
  Receive Date: 20130530
  Receipt Date: 20130530
  Transmission Date: 20140414
  Serious: Yes (Hospitalization)
  Sender: FDA-Public Use
  Company Number: FR-GLAXOSMITHKLINE-B0893325A

PATIENT
  Age: 62 Year
  Sex: Female

DRUGS (13)
  1. ZELITREX [Suspect]
     Indication: IMMUNOSUPPRESSION
     Route: 048
     Dates: start: 20130402, end: 20130412
  2. ZOPHREN [Suspect]
     Indication: PROPHYLAXIS OF NAUSEA AND VOMITING
     Dosage: 8MG PER DAY
     Route: 042
     Dates: start: 20130403, end: 20130411
  3. NOXAFIL [Suspect]
     Indication: IMMUNOSUPPRESSION
     Route: 048
     Dates: start: 20130402, end: 20130412
  4. SPECIAFOLDINE [Suspect]
     Indication: ANAEMIA
     Route: 048
     Dates: start: 20130403, end: 20130405
  5. IDARUBICINE [Suspect]
     Indication: ACUTE MYELOID LEUKAEMIA
     Route: 042
     Dates: start: 20130404, end: 20130408
  6. ARACYTINE [Suspect]
     Indication: ACUTE MYELOID LEUKAEMIA
     Route: 042
     Dates: start: 20130404, end: 20130410
  7. TRANXENE [Suspect]
     Indication: ANXIETY
     Dates: start: 20130406, end: 20130412
  8. LASILIX [Concomitant]
     Route: 042
     Dates: start: 20130410
  9. INEXIUM [Concomitant]
     Route: 042
     Dates: start: 20130404
  10. PLITICAN [Concomitant]
     Route: 042
     Dates: start: 20130403
  11. TRIFLUCAN [Concomitant]
     Indication: IMMUNOSUPPRESSION
     Dosage: 400MG PER DAY
     Route: 048
     Dates: start: 20130402, end: 20130406
  12. COAPROVEL [Concomitant]
  13. LEVOTHYROX [Concomitant]

REACTIONS (3)
  - Rash maculo-papular [Recovered/Resolved]
  - Rash pruritic [Recovered/Resolved]
  - Thrombocytopenic purpura [Recovered/Resolved]
